FAERS Safety Report 12548509 (Version 1)
Quarter: 2016Q3

REPORT INFORMATION
  Report Type: Spontaneous
  Country: US (occurrence: US)
  Receive Date: 20160712
  Receipt Date: 20160712
  Transmission Date: 20161109
  Serious: Yes (Other)
  Sender: FDA-Public Use
  Company Number: US-OTSUKA-2016_016581

PATIENT
  Age: 69 Year
  Sex: Male

DRUGS (1)
  1. DACOGEN [Suspect]
     Active Substance: DECITABINE
     Indication: MYELODYSPLASTIC SYNDROME
     Dosage: 20 MG/M2, 5 DAYS - 3 CYCLES
     Route: 065

REACTIONS (3)
  - Graft versus host disease [Unknown]
  - Cytopenia [Unknown]
  - Infection [Unknown]
